FAERS Safety Report 9749912 (Version 1)
Quarter: 2013Q4

REPORT INFORMATION
  Report Type: Spontaneous
  Country: US (occurrence: US)
  Receive Date: 20131212
  Receipt Date: 20131212
  Transmission Date: 20140711
  Serious: Yes (Hospitalization)
  Sender: FDA-Public Use
  Company Number: US-BAYER-2013-151031

PATIENT
  Age: 29 Year
  Sex: Female

DRUGS (6)
  1. YAZ [Suspect]
  2. YASMIN [Suspect]
  3. OCELLA [Suspect]
  4. LORTAB [Concomitant]
  5. COUMADIN [Concomitant]
  6. LOVENOX [Concomitant]

REACTIONS (2)
  - Cholecystitis acute [None]
  - Pulmonary embolism [None]
